FAERS Safety Report 15525395 (Version 1)
Quarter: 2018Q4

REPORT INFORMATION
  Report Type: Spontaneous
  Country: FR (occurrence: FR)
  Receive Date: 20181019
  Receipt Date: 20181019
  Transmission Date: 20190205
  Serious: Yes (Hospitalization)
  Sender: FDA-Public Use
  Company Number: FR-TEVA-2018-FR-966213

PATIENT
  Age: 68 Year
  Sex: Female

DRUGS (2)
  1. PREDNISOLONE. [Suspect]
     Active Substance: PREDNISOLONE
     Indication: ARTHRITIS REACTIVE
     Dosage: 80 MILLIGRAM DAILY; 80 MG/D THEN DECAY OF 10MG/WEEK FROM 13/08/2018
     Route: 048
     Dates: start: 20180807
  2. METHYLPREDNISOLONE (HEMISUCCINATE DE) [Suspect]
     Active Substance: METHYLPREDNISOLONE HEMISUCCINATE
     Indication: ARTHRITIS REACTIVE
     Dosage: 60 MILLIGRAM DAILY;
     Route: 041
     Dates: start: 20180720, end: 20180806

REACTIONS (2)
  - Oesophageal candidiasis [Recovering/Resolving]
  - Oral candidiasis [Recovering/Resolving]

NARRATIVE: CASE EVENT DATE: 20180816
